FAERS Safety Report 9480289 (Version 1)
Quarter: 2013Q3

REPORT INFORMATION
  Report Type: Spontaneous
  Country: US (occurrence: US)
  Receive Date: 20130828
  Receipt Date: 20130828
  Transmission Date: 20140515
  Serious: Yes (Other)
  Sender: FDA-Public Use
  Company Number: US-AMGEN-KDL094941

PATIENT
  Age: 76 Year
  Sex: Male

DRUGS (2)
  1. ENBREL [Suspect]
     Indication: RHEUMATOID ARTHRITIS
     Dosage: 25 MG, 2 TIMES/WK
     Route: 058
     Dates: start: 20031101
  2. PREDNISONE [Concomitant]

REACTIONS (5)
  - Cervical vertebral fracture [Unknown]
  - Hepatic neoplasm [Unknown]
  - Pulmonary mass [Unknown]
  - Fall [Unknown]
  - Musculoskeletal chest pain [Unknown]
